FAERS Safety Report 9514301 (Version 2)
Quarter: 2013Q3

REPORT INFORMATION
  Report Type: Spontaneous
  Country: US (occurrence: US)
  Receive Date: 20130911
  Receipt Date: 20130925
  Transmission Date: 20140515
  Serious: Yes (Death, Other)
  Sender: FDA-Public Use
  Company Number: US-AMGEN-USASP2013062841

PATIENT
  Age: 74 Year
  Sex: Male
  Weight: 71.66 kg

DRUGS (6)
  1. PROLIA [Suspect]
     Indication: OSTEOPOROSIS
     Dosage: 60 MG, Q6MO
     Route: 030
     Dates: start: 20130116, end: 20130116
  2. ZELBORAF [Concomitant]
     Dosage: 720 MG, BID
     Route: 048
  3. EUCERIN                            /00021201/ [Concomitant]
     Dosage: UNK UNK, AS NECESSARY
  4. UREA [Concomitant]
     Dosage: UNK UNK, AS NECESSARY
  5. TRIAMCINOLONE                      /00031902/ [Concomitant]
     Dosage: UNK UNK, BID
  6. VITAMIN D3 [Concomitant]
     Dosage: UNK UNK, Q2WK

REACTIONS (10)
  - Malignant melanoma [Unknown]
  - Partial seizures [Recovered/Resolved]
  - Metastases to central nervous system [Fatal]
  - Fatigue [Unknown]
  - Oedema peripheral [Unknown]
  - Asthenia [Unknown]
  - Balance disorder [Unknown]
  - Feeling cold [Unknown]
  - Decreased appetite [Unknown]
  - Hiccups [Unknown]
